FAERS Safety Report 20190027 (Version 2)
Quarter: 2023Q1

REPORT INFORMATION
  Report Type: Spontaneous
  Country: US (occurrence: US)
  Receive Date: 20211215
  Receipt Date: 20230105
  Transmission Date: 20230418
  Serious: Yes (Other)
  Sender: FDA-Public Use
  Company Number: US-PFIZER INC-202101752389

PATIENT
  Age: 81 Year
  Sex: Male

DRUGS (1)
  1. VYNDAMAX [Suspect]
     Active Substance: TAFAMIDIS
     Indication: Amyloidosis senile
     Dosage: 61 MG

REACTIONS (24)
  - Cardiac amyloidosis [Unknown]
  - Atrial fibrillation [Unknown]
  - Arteriosclerosis coronary artery [Unknown]
  - Cardiac failure [Unknown]
  - Nausea [Unknown]
  - Cough [Unknown]
  - Chronic left ventricular failure [Unknown]
  - Fatigue [Unknown]
  - Essential hypertension [Unknown]
  - Obstructive sleep apnoea syndrome [Unknown]
  - Hypercholesterolaemia [Unknown]
  - Anxiety [Unknown]
  - Hypertension [Unknown]
  - Arthralgia [Unknown]
  - Prostatic disorder [Unknown]
  - Chronic obstructive pulmonary disease [Unknown]
  - Back pain [Unknown]
  - Dyspnoea exertional [Unknown]
  - Obesity [Unknown]
  - Dyspnoea [Unknown]
  - Oedema [Unknown]
  - Physical deconditioning [Unknown]
  - Pain [Unknown]
  - Off label use [Unknown]

NARRATIVE: CASE EVENT DATE: 20211126
